FAERS Safety Report 8317903-8 (Version None)
Quarter: 2012Q2

REPORT INFORMATION
  Report Type: 
  Country: None (occurrence: None)
  Receive Date: 20120427
  Receipt Date: 20120420
  Transmission Date: 20120825
  Serious: Yes (Life-Threatening, Hospitalization, Other)
  Sender: FDA-Public Use
  Company Number: IT-CELGENEUS-083-C5013-12033151

PATIENT
  Sex: Male

DRUGS (1)
  1. CHLORAMBUCIL [Suspect]
     Dosage: 48 MILLIGRAM
     Route: 065
     Dates: start: 20110310, end: 20120309

REACTIONS (3)
  - THROMBOCYTOPENIA [None]
  - ACUTE MYELOID LEUKAEMIA [None]
  - ANAEMIA [None]
